FAERS Safety Report 5516493-2 (Version None)
Quarter: 2007Q4

REPORT INFORMATION
  Report Type: 
  Country: None (occurrence: None)
  Receive Date: 20071114
  Receipt Date: 20070306
  Transmission Date: 20080405
  Serious: No
  Sender: FDA-Public Use
  Company Number: A0641810A

PATIENT
  Age: 51 Year
  Sex: Female

DRUGS (3)
  1. COMMIT [Suspect]
  2. COMMIT [Suspect]
  3. COMMIT [Suspect]

REACTIONS (5)
  - ANXIETY [None]
  - DYSPNOEA [None]
  - INTENTIONAL DRUG MISUSE [None]
  - SENSATION OF FOREIGN BODY [None]
  - WITHDRAWAL SYNDROME [None]
